FAERS Safety Report 20649919 (Version 1)
Quarter: 2022Q1

REPORT INFORMATION
  Report Type: Spontaneous
  Country: CN (occurrence: CN)
  Receive Date: 20220329
  Receipt Date: 20220329
  Transmission Date: 20220424
  Serious: Yes (Other)
  Sender: FDA-Public Use
  Company Number: CN-PFIZER INC-202200433909

PATIENT
  Age: 81 Year
  Sex: Male
  Weight: 46 kg

DRUGS (20)
  1. METHYLPREDNISOLONE SODIUM SUCCINATE [Suspect]
     Active Substance: METHYLPREDNISOLONE SODIUM SUCCINATE
     Indication: Laparoscopic surgery
     Dosage: 40 MG, 1X/DAY
     Route: 042
     Dates: start: 20220301, end: 20220301
  2. METHYLPREDNISOLONE SODIUM SUCCINATE [Suspect]
     Active Substance: METHYLPREDNISOLONE SODIUM SUCCINATE
     Indication: Gastrorrhaphy
  3. DEXMEDETOMIDINE HYDROCHLORIDE [Suspect]
     Active Substance: DEXMEDETOMIDINE HYDROCHLORIDE
     Indication: Laparoscopic surgery
     Dosage: 0.04 MG, 1X/DAY
     Route: 041
     Dates: start: 20220301, end: 20220301
  4. DEXMEDETOMIDINE HYDROCHLORIDE [Suspect]
     Active Substance: DEXMEDETOMIDINE HYDROCHLORIDE
     Indication: Gastrorrhaphy
  5. PROPOFOL [Suspect]
     Active Substance: PROPOFOL
     Indication: Laparoscopic surgery
     Dosage: 0.2 G, 1X/DAY
     Route: 042
     Dates: start: 20220301, end: 20220301
  6. PROPOFOL [Suspect]
     Active Substance: PROPOFOL
     Indication: Gastrorrhaphy
  7. DEZOCINE [Suspect]
     Active Substance: DEZOCINE
     Indication: Laparoscopic surgery
     Dosage: 5 MG, 1X/DAY
     Route: 042
     Dates: start: 20220301, end: 20220301
  8. DEZOCINE [Suspect]
     Active Substance: DEZOCINE
     Indication: Gastrorrhaphy
  9. SUFENTANIL CITRATE [Suspect]
     Active Substance: SUFENTANIL CITRATE
     Indication: Laparoscopic surgery
     Dosage: 20 UG, 1X/DAY
     Route: 042
     Dates: start: 20220301, end: 20220301
  10. SUFENTANIL CITRATE [Suspect]
     Active Substance: SUFENTANIL CITRATE
     Indication: Gastrorrhaphy
  11. BUTORPHANOL TARTRATE [Suspect]
     Active Substance: BUTORPHANOL TARTRATE
     Indication: Laparoscopic surgery
     Dosage: 1 MG, 1X/DAY
     Route: 041
     Dates: start: 20220301, end: 20220301
  12. BUTORPHANOL TARTRATE [Suspect]
     Active Substance: BUTORPHANOL TARTRATE
     Indication: Gastrorrhaphy
  13. DEXAMETHASONE SODIUM PHOSPHATE [Concomitant]
     Active Substance: DEXAMETHASONE SODIUM PHOSPHATE
     Indication: Laparoscopic surgery
     Dosage: 10 MG, 1X/DAY
     Route: 042
     Dates: start: 20220301, end: 20220301
  14. DEXAMETHASONE SODIUM PHOSPHATE [Concomitant]
     Active Substance: DEXAMETHASONE SODIUM PHOSPHATE
     Indication: Gastrorrhaphy
  15. SODIUM CHLORIDE [Concomitant]
     Active Substance: SODIUM CHLORIDE
     Indication: Laparoscopic surgery
     Dosage: 20 ML, 1X/DAY
     Route: 041
     Dates: start: 20220301, end: 20220301
  16. SODIUM CHLORIDE [Concomitant]
     Active Substance: SODIUM CHLORIDE
     Indication: Gastrorrhaphy
  17. LORNOXICAM [Concomitant]
     Active Substance: LORNOXICAM
     Indication: Laparoscopic surgery
     Dosage: 16 MG, 1X/DAY
     Route: 041
     Dates: start: 20220301, end: 20220301
  18. LORNOXICAM [Concomitant]
     Active Substance: LORNOXICAM
     Indication: Gastrorrhaphy
  19. WATER FOR INJECTION [Concomitant]
     Active Substance: WATER
     Indication: Laparoscopic surgery
     Dosage: 2 ML, 1X/DAY
     Route: 041
     Dates: start: 20220301, end: 20220301
  20. WATER FOR INJECTION [Concomitant]
     Active Substance: WATER
     Indication: Gastrorrhaphy

REACTIONS (2)
  - Delirium [Unknown]
  - Off label use [Unknown]

NARRATIVE: CASE EVENT DATE: 20220302
